FAERS Safety Report 18316887 (Version 1)
Quarter: 2020Q3

REPORT INFORMATION
  Report Type: Spontaneous
  Country: CN (occurrence: CN)
  Receive Date: 20200928
  Receipt Date: 20200928
  Transmission Date: 20201103
  Serious: Yes (Other)
  Sender: FDA-Public Use
  Company Number: CN-SUN PHARMACEUTICAL INDUSTRIES LTD-2019R1-223623

PATIENT
  Age: 73 Year
  Sex: Female

DRUGS (7)
  1. CAPECITABIN [Suspect]
     Active Substance: CAPECITABINE
     Dosage: 1500 MILLIGRAM, DAILY, TWICE DAILY, ON DAYS 1?14, THIRD CYCLE
     Route: 048
     Dates: start: 201704
  2. CAPECITABIN [Suspect]
     Active Substance: CAPECITABINE
     Dosage: 1500 MILLIGRAM, DAILY, TWICE DAILY, ON DAYS 1?14, FORTH CYCLE
     Route: 048
     Dates: start: 201704
  3. CAPECITABIN [Suspect]
     Active Substance: CAPECITABINE
     Dosage: 1000 MILLIGRAM, DAILY, TWICE DAILY, FIFTH CYCLE
     Route: 048
  4. DOCETAXEL. [Concomitant]
     Active Substance: DOCETAXEL
     Indication: BREAST CANCER STAGE II
     Dosage: 12 MILLIGRAM, ON DAY 1
     Route: 042
     Dates: start: 201704
  5. CAPECITABIN [Suspect]
     Active Substance: CAPECITABINE
     Dosage: 1000 MILLIGRAM, BID, SIXTH CYCLE
     Route: 048
     Dates: start: 20200810, end: 20200810
  6. CAPECITABIN [Suspect]
     Active Substance: CAPECITABINE
     Indication: BREAST CANCER STAGE II
     Dosage: 1500 MILLIGRAM, DAILY, TWICE DAILY, ON DAYS 1?14, 1ST CYCLE
     Route: 048
     Dates: start: 201704
  7. CAPECITABIN [Suspect]
     Active Substance: CAPECITABINE
     Dosage: 1500 MILLIGRAM, DAILY, TWICE DAILY, ON DAYS 1?14, SECOND CYCLE
     Route: 048
     Dates: start: 201704

REACTIONS (5)
  - Condition aggravated [Recovering/Resolving]
  - Haemorrhage [Recovering/Resolving]
  - Palmar-plantar erythrodysaesthesia syndrome [Recovering/Resolving]
  - Skin fissures [Recovering/Resolving]
  - Fingerprint loss [Recovering/Resolving]
